FAERS Safety Report 7291853-0 (Version None)
Quarter: 2011Q1

REPORT INFORMATION
  Report Type: 
  Country: None (occurrence: None)
  Receive Date: 20110214
  Receipt Date: 20110204
  Transmission Date: 20110831
  Serious: Yes (Hospitalization)
  Sender: FDA-Public Use
  Company Number: FR-ROCHE-758016

PATIENT
  Sex: Female

DRUGS (2)
  1. TAKETIAM [Concomitant]
     Route: 048
     Dates: start: 20101201, end: 20101201
  2. XELODA [Suspect]
     Dosage: DOSE: TWICE A DAY FOR 12 DAYS
     Route: 048
     Dates: start: 20101130, end: 20110120

REACTIONS (6)
  - AGGRESSION [None]
  - DELUSION [None]
  - FATIGUE [None]
  - AGITATION [None]
  - DISORIENTATION [None]
  - CONFUSIONAL STATE [None]
